FAERS Safety Report 6473529-2 (Version None)
Quarter: 2009Q4

REPORT INFORMATION
  Report Type: 
  Country: None (occurrence: None)
  Receive Date: 20091204
  Receipt Date: 20090119
  Transmission Date: 20100525
  Serious: Yes (Hospitalization)
  Sender: FDA-Public Use
  Company Number: US-ELI_LILLY_AND_COMPANY-US200811004829

PATIENT
  Sex: Male
  Weight: 61.224 kg

DRUGS (11)
  1. PEMETREXED [Suspect]
     Indication: NON-SMALL CELL LUNG CANCER
     Dosage: 500 MG/M2, OTHER
     Route: 042
     Dates: start: 20080801, end: 20081006
  2. FOLIC ACID [Concomitant]
     Indication: PROPHYLAXIS
     Dates: start: 20080826
  3. VITAMIN B-12 [Concomitant]
     Indication: PROPHYLAXIS
     Dates: start: 20080722, end: 20081006
  4. DEXAMETHASONE TAB [Concomitant]
     Indication: PROPHYLAXIS
     Dates: start: 20080801, end: 20081006
  5. ADVAIR DISKUS 100/50 [Concomitant]
     Indication: CHRONIC OBSTRUCTIVE PULMONARY DISEASE
     Dates: start: 20080501
  6. MEGACE [Concomitant]
     Dates: start: 20080320
  7. ARIXTRA [Concomitant]
     Indication: PROPHYLAXIS
     Dates: start: 20080510
  8. TARCEVA [Concomitant]
     Indication: NON-SMALL CELL LUNG CANCER
     Dates: start: 20081027, end: 20081104
  9. ZOMETA [Concomitant]
     Indication: NON-SMALL CELL LUNG CANCER
     Dates: start: 20081027, end: 20081104
  10. MS CONTIN [Concomitant]
     Indication: PAIN
     Dates: start: 20080320
  11. MORPHINE SULFATE [Concomitant]
     Indication: PAIN
     Dates: start: 20080320

REACTIONS (4)
  - ANAEMIA [None]
  - ASTHENIA [None]
  - GASTROINTESTINAL HAEMORRHAGE [None]
  - MALNUTRITION [None]
